FAERS Safety Report 12099089 (Version 2)
Quarter: 2017Q2

REPORT INFORMATION
  Report Type: Spontaneous
  Country: FR (occurrence: FR)
  Receive Date: 20160222
  Receipt Date: 20170509
  Transmission Date: 20170829
  Serious: Yes (Hospitalization)
  Sender: FDA-Public Use
  Company Number: FR-SA-2016SA030977

PATIENT
  Age: 57 Year
  Sex: Male

DRUGS (14)
  1. IMMUGRIP [Suspect]
     Active Substance: INFLUENZA VIRUS VACCINE
     Indication: INFLUENZA IMMUNISATION
     Route: 030
     Dates: start: 20151120, end: 20151120
  2. ARAVA [Suspect]
     Active Substance: LEFLUNOMIDE
     Indication: PRODUCT USED FOR UNKNOWN INDICATION
     Route: 048
     Dates: start: 20150827, end: 20160106
  3. ARAVA [Suspect]
     Active Substance: LEFLUNOMIDE
     Indication: PRODUCT USED FOR UNKNOWN INDICATION
     Route: 048
     Dates: start: 20160106
  4. DOLIPRANE [Concomitant]
     Active Substance: ACETAMINOPHEN
     Route: 065
     Dates: start: 20150727
  5. ACEBUTOLOL [Concomitant]
     Active Substance: ACEBUTOLOL
     Route: 065
     Dates: start: 20150727
  6. LERCANIDIPINE [Concomitant]
     Active Substance: LERCANIDIPINE
     Route: 065
     Dates: start: 20150727
  7. INEXIUM [Concomitant]
     Active Substance: ESOMEPRAZOLE
     Route: 065
  8. FOSCAVIR [Suspect]
     Active Substance: FOSCARNET SODIUM
     Indication: PRODUCT USED FOR UNKNOWN INDICATION
     Route: 042
     Dates: start: 20150821, end: 20151229
  9. CIFLOX [Concomitant]
     Active Substance: CIPROFLOXACIN
     Route: 065
  10. FOSCAVIR [Suspect]
     Active Substance: FOSCARNET SODIUM
     Indication: PRODUCT USED FOR UNKNOWN INDICATION
     Route: 065
     Dates: start: 201601, end: 201605
  11. RAPAMUNE [Suspect]
     Active Substance: SIROLIMUS
     Indication: PRODUCT USED FOR UNKNOWN INDICATION
     Route: 048
     Dates: start: 20150727
  12. ORACILLINE [Concomitant]
     Active Substance: PENICILLIN V
     Route: 065
     Dates: start: 20150821
  13. AZITHROMYCIN ANHYDROUS. [Concomitant]
     Active Substance: AZITHROMYCIN ANHYDROUS
     Route: 065
  14. DIFFU K [Concomitant]
     Active Substance: POTASSIUM CHLORIDE
     Route: 065

REACTIONS (1)
  - Guillain-Barre syndrome [Recovered/Resolved with Sequelae]

NARRATIVE: CASE EVENT DATE: 201512
